FAERS Safety Report 4879516-X (Version None)
Quarter: 2006Q1

REPORT INFORMATION
  Report Type: 
  Country: None (occurrence: None)
  Receive Date: 20060113
  Receipt Date: 20060102
  Transmission Date: 20060701
  Serious: Yes (Other)
  Sender: FDA-Public Use
  Company Number: FR-JNJFOC-20051201745

PATIENT
  Age: 44 Year
  Sex: Male
  Weight: 76 kg

DRUGS (2)
  1. REMICADE [Suspect]
     Indication: ANKYLOSING SPONDYLITIS
     Dosage: 15 INFUSIONS.
     Route: 042
  2. NOVATREX [Concomitant]
     Route: 048

REACTIONS (5)
  - ASTHENIA [None]
  - BRADYCARDIA [None]
  - BUNDLE BRANCH BLOCK [None]
  - SYNCOPE [None]
  - VERTIGO [None]
